FAERS Safety Report 5509510-7 (Version None)
Quarter: 2007Q4

REPORT INFORMATION
  Report Type: 
  Country: None (occurrence: None)
  Receive Date: 20071029
  Receipt Date: 20070827
  Transmission Date: 20080405
  Serious: No
  Sender: FDA-Public Use
  Company Number: 013052

PATIENT
  Sex: Male

DRUGS (2)
  1. PRIALT [Suspect]
     Indication: BACK PAIN
     Dosage: UG, ONCE/HOUR, INTRATHECAL
     Route: 037
     Dates: start: 20030301
  2. METHADONE HCL [Concomitant]

REACTIONS (4)
  - EXTRAOCULAR MUSCLE PARESIS [None]
  - EYE PAIN [None]
  - PHOTOPHOBIA [None]
  - VISION BLURRED [None]
